FAERS Safety Report 6257345-2 (Version None)
Quarter: 2009Q3

REPORT INFORMATION
  Report Type: 
  Country: None (occurrence: None)
  Receive Date: 20090706
  Receipt Date: 20090625
  Transmission Date: 20100115
  Serious: Yes (Other)
  Sender: FDA-Public Use
  Company Number: PHHY2009JP20359

PATIENT
  Sex: Female

DRUGS (10)
  1. DIOVAN T30230+TAB+HY [Suspect]
     Indication: HYPERTENSION
     Dosage: 160 MG, QD
     Route: 048
     Dates: start: 20080204, end: 20080821
  2. DIOVAN T30230+TAB+HY [Suspect]
     Dosage: 80 MG, QD
     Route: 048
     Dates: start: 20080822, end: 20080905
  3. RENIVACE [Concomitant]
     Indication: HYPERTENSION
     Dosage: 5 MG
     Route: 048
     Dates: start: 20070226, end: 20080516
  4. NORVASC [Concomitant]
     Dosage: 10 MG
     Route: 048
     Dates: start: 20060809, end: 20080901
  5. MICARDIS [Concomitant]
     Indication: HYPERTENSION
     Dosage: 40 MG
     Route: 048
     Dates: start: 20070115, end: 20080203
  6. KREMEZIN [Concomitant]
     Dosage: 6 GM
     Route: 048
     Dates: start: 20060809, end: 20080410
  7. LASIX [Concomitant]
     Dosage: 40 MG
     Route: 048
  8. RHYTHMY [Concomitant]
     Dosage: 1 MG
     Route: 048
  9. CALCIUM POLYSTYRENE SULFONATE [Concomitant]
     Dosage: 10 GM
     Route: 048
     Dates: start: 20060809, end: 20080410
  10. BIASAN [Concomitant]
     Dosage: 3.3 GM
     Route: 048
     Dates: start: 20060809, end: 20080410

REACTIONS (4)
  - BLOOD CREATININE INCREASED [None]
  - BLOOD GLUCOSE INCREASED [None]
  - BLOOD PRESSURE DIASTOLIC DECREASED [None]
  - DIALYSIS [None]
